FAERS Safety Report 16020965 (Version 1)
Quarter: 2019Q1

REPORT INFORMATION
  Report Type: Spontaneous
  Country: US (occurrence: None)
  Receive Date: 20190228
  Receipt Date: 20190228
  Transmission Date: 20190418
  Serious: Yes (Disabling)
  Sender: FDA-Public Use
  Company Number: 18MRZ-00603

PATIENT
  Age: 54 Year
  Sex: Female

DRUGS (1)
  1. MEDERMA STRETCH MARKS THERAPY [Suspect]
     Active Substance: DIMETHICONE
     Indication: PRODUCT USED FOR UNKNOWN INDICATION
     Route: 061

REACTIONS (6)
  - Rash [None]
  - Inflammation [None]
  - Urticaria [None]
  - Pain [None]
  - Malaise [None]
  - Application site rash [None]
